FAERS Safety Report 15962167 (Version 4)
Quarter: 2019Q2

REPORT INFORMATION
  Report Type: Spontaneous
  Country: BE (occurrence: BE)
  Receive Date: 20190214
  Receipt Date: 20190503
  Transmission Date: 20190711
  Serious: Yes (Hospitalization, Other)
  Sender: FDA-Public Use
  Company Number: BE-GLAXOSMITHKLINE-BE2019026364

PATIENT
  Sex: Female

DRUGS (1)
  1. VOLTAREN [Suspect]
     Active Substance: DICLOFENAC SODIUM
     Indication: PRODUCT USED FOR UNKNOWN INDICATION
     Dosage: UNK
     Route: 065

REACTIONS (8)
  - Urticaria [Unknown]
  - Asthma [Unknown]
  - Erythema [Unknown]
  - Rash [Unknown]
  - Wheezing [Unknown]
  - Anaphylactic reaction [Unknown]
  - Flushing [Unknown]
  - Hypotension [Unknown]
